FAERS Safety Report 7285184-2 (Version None)
Quarter: 2011Q1

REPORT INFORMATION
  Report Type: 
  Country: None (occurrence: None)
  Receive Date: 20110210
  Receipt Date: 20110131
  Transmission Date: 20110831
  Serious: Yes (Other)
  Sender: FDA-Public Use
  Company Number: FR-JNJFOC-20110201371

PATIENT
  Age: 23 Year
  Sex: Male

DRUGS (4)
  1. MICONAZOLE [Suspect]
     Route: 042
  2. MICONAZOLE [Suspect]
     Route: 061
  3. MICONAZOLE [Suspect]
     Indication: FUNGAL INFECTION
     Route: 042
  4. MICONAZOLE [Suspect]
     Route: 061

REACTIONS (2)
  - DRUG INEFFECTIVE [None]
  - EOSINOPHILIA [None]
